FAERS Safety Report 12389541 (Version 2)
Quarter: 2016Q2

REPORT INFORMATION
  Report Type: Spontaneous
  Country: EG (occurrence: EG)
  Receive Date: 20160520
  Receipt Date: 20160607
  Transmission Date: 20160815
  Serious: Yes (Death, Other)
  Sender: FDA-Public Use
  Company Number: EG-BEH-2016062582

PATIENT
  Age: 9 Year
  Sex: Male

DRUGS (2)
  1. INTRAVENOUS IMMUNOGLOBULINS [Suspect]
     Active Substance: HUMAN IMMUNOGLOBULIN G
     Indication: STEVENS-JOHNSON SYNDROME
     Route: 042
  2. CYCLOSPORINE. [Suspect]
     Active Substance: CYCLOSPORINE
     Indication: STEVENS-JOHNSON SYNDROME

REACTIONS (15)
  - Pityriasis lichenoides et varioliformis acuta [Unknown]
  - Pseudomonal sepsis [Fatal]
  - Multiple organ dysfunction syndrome [None]
  - Cardiomyopathy [None]
  - Ecthyma [Unknown]
  - Generalised oedema [None]
  - Skin lesion [Unknown]
  - Skin necrosis [Unknown]
  - Skin plaque [Unknown]
  - Wound infection pseudomonas [Unknown]
  - Papule [Unknown]
  - Hypotension [None]
  - Renal impairment [Unknown]
  - Drug ineffective for unapproved indication [Unknown]
  - Systemic inflammatory response syndrome [None]
